FAERS Safety Report 7470603-9 (Version None)
Quarter: 2011Q2

REPORT INFORMATION
  Report Type: 
  Country: None (occurrence: None)
  Receive Date: 20110510
  Receipt Date: 20110429
  Transmission Date: 20111010
  Serious: Yes (Hospitalization)
  Sender: FDA-Public Use
  Company Number: DE-ELI_LILLY_AND_COMPANY-DE201104008007

PATIENT
  Sex: Male

DRUGS (9)
  1. ASPIRIN [Concomitant]
     Dosage: UNK
  2. HUMAN INSULIN [Suspect]
     Indication: DIABETES MELLITUS
     Dosage: 40 DF, EACH EVENING
     Route: 058
  3. MICTONORM [Concomitant]
     Dosage: UNK
  4. METFORMIN HCL [Concomitant]
     Dosage: UNK
  5. ALLOPURINOL [Concomitant]
     Dosage: UNK
  6. SIMVAHEXAL [Concomitant]
     Dosage: 20 MG, EACH EVENING
  7. NITRENDIPIN [Concomitant]
     Dosage: UNK
  8. GLIMEPIRID [Concomitant]
     Dosage: UNK
  9. BLOPRESS PLUS [Concomitant]
     Dosage: UNK

REACTIONS (1)
  - BLOOD GLUCOSE INCREASED [None]
